FAERS Safety Report 16044972 (Version 8)
Quarter: 2020Q4

REPORT INFORMATION
  Report Type: Other
  Country: CA (occurrence: CA)
  Receive Date: 20190307
  Receipt Date: 20201203
  Transmission Date: 20210113
  Serious: Yes (Hospitalization, Other)
  Sender: FDA-Public Use
  Company Number: CA-ROCHE-2276969

PATIENT
  Age: 38 Year
  Sex: Female

DRUGS (7)
  1. XOLAIR [Suspect]
     Active Substance: OMALIZUMAB
     Route: 058
     Dates: start: 20190301
  2. MORPHINE [Suspect]
     Active Substance: MORPHINE
     Indication: PRODUCT USED FOR UNKNOWN INDICATION
     Route: 065
  3. XOLAIR [Suspect]
     Active Substance: OMALIZUMAB
     Indication: ASTHMA
     Route: 058
     Dates: start: 20180611
  4. XOLAIR [Suspect]
     Active Substance: OMALIZUMAB
     Route: 058
     Dates: start: 20180713
  5. XOLAIR [Suspect]
     Active Substance: OMALIZUMAB
     Route: 058
     Dates: start: 20200427
  6. XOLAIR [Suspect]
     Active Substance: OMALIZUMAB
     Route: 058
  7. XOLAIR [Suspect]
     Active Substance: OMALIZUMAB
     Route: 058

REACTIONS (15)
  - Pneumonia [Unknown]
  - Blood pressure increased [Unknown]
  - Asthma [Unknown]
  - Thrombosis [Unknown]
  - Inappropriate schedule of product administration [Unknown]
  - Anaphylactic reaction [Unknown]
  - Tachycardia [Unknown]
  - Hypersensitivity [Unknown]
  - Influenza like illness [Unknown]
  - Dyspnoea [Recovering/Resolving]
  - Drug intolerance [Unknown]
  - Head injury [Recovering/Resolving]
  - Pyrexia [Unknown]
  - Fall [Unknown]
  - Illness [Unknown]

NARRATIVE: CASE EVENT DATE: 20180611
